FAERS Safety Report 23601887 (Version 1)
Quarter: 2024Q1

REPORT INFORMATION
  Report Type: Spontaneous
  Country: CZ (occurrence: CZ)
  Receive Date: 20240306
  Receipt Date: 20240306
  Transmission Date: 20240409
  Serious: Yes (Other)
  Sender: FDA-Public Use
  Company Number: CZ-JNJFOC-20240258479

PATIENT
  Age: 42 Year
  Sex: Female

DRUGS (4)
  1. REVLIMID [Suspect]
     Active Substance: LENALIDOMIDE
     Indication: Plasma cell myeloma
     Dosage: DEVELOPED NEUTROPENIA, THEREFORE FROM THE 2ND CYCLE 10 MG PER DAY, THEN FURTHER REDUCTION TO 2-3 TIM
  2. DARZALEX [Suspect]
     Active Substance: DARATUMUMAB
     Indication: Plasma cell myeloma
     Route: 042
     Dates: start: 202102
  3. DARZALEX [Suspect]
     Active Substance: DARATUMUMAB
     Route: 058
     Dates: start: 202207
  4. DEXAMETHASONE [Suspect]
     Active Substance: DEXAMETHASONE
     Indication: Plasma cell myeloma
     Dosage: GRADUAL REDUCTION UP TO 8 MG PER WEEK

REACTIONS (7)
  - COVID-19 [Unknown]
  - Neutropenia [Unknown]
  - Hypertension [Unknown]
  - Anaemia [Unknown]
  - Blood creatinine increased [Unknown]
  - Transient ischaemic attack [Unknown]
  - Ischaemic cardiomyopathy [Unknown]

NARRATIVE: CASE EVENT DATE: 20211001
